FAERS Safety Report 9339349 (Version 3)
Quarter: 2014Q1

REPORT INFORMATION
  Report Type: Spontaneous
  Country: ES (occurrence: ES)
  Receive Date: 20130610
  Receipt Date: 20140113
  Transmission Date: 20141002
  Serious: Yes (Other)
  Sender: FDA-Public Use
  Company Number: ES-PFIZER INC-2013169495

PATIENT
  Age: 4 Year
  Sex: Female
  Weight: 9.7 kg

DRUGS (1)
  1. SOMATROPIN [Suspect]
     Indication: SMALL FOR DATES BABY
     Dosage: 0.04 MG/KG, 1X/DAY
     Route: 058

REACTIONS (1)
  - VIIth nerve paralysis [Recovered/Resolved]
